FAERS Safety Report 4994696-3 (Version None)
Quarter: 2006Q1

REPORT INFORMATION
  Report Type: 
  Country: None (occurrence: None)
  Receive Date: 20060313
  Receipt Date: 20051118
  Transmission Date: 20060701
  Serious: No
  Sender: FDA-Public Use
  Company Number: 2005-BP-20452BP

PATIENT
  Age: 69 Year
  Sex: Female

DRUGS (4)
  1. SPIRIVA [Suspect]
     Indication: ASTHMA
     Dosage: 18 MCG (18 MCG,1 IN 1 D),IH
     Dates: start: 20051103, end: 20051118
  2. VYTORIN (INEGY) [Concomitant]
  3. INDERAL [Concomitant]
  4. VITAMINS [Concomitant]

REACTIONS (5)
  - CHAPPED LIPS [None]
  - DRY MOUTH [None]
  - DRY THROAT [None]
  - MUSCULOSKELETAL DISCOMFORT [None]
  - NAUSEA [None]
